FAERS Safety Report 8891058 (Version 3)
Quarter: 2013Q2

REPORT INFORMATION
  Report Type: Report from Study
  Country: JP (occurrence: JP)
  Receive Date: 20121107
  Receipt Date: 20130425
  Transmission Date: 20140414
  Serious: Yes (Other)
  Sender: FDA-Public Use
  Company Number: JP-JNJFOC-20121102066

PATIENT
  Age: 44 Year
  Sex: Male
  Weight: 68 kg

DRUGS (24)
  1. USTEKINUMAB [Suspect]
     Indication: PSORIATIC ARTHROPATHY
     Route: 058
     Dates: start: 20120130
  2. USTEKINUMAB [Suspect]
     Indication: PSORIATIC ARTHROPATHY
     Route: 058
     Dates: start: 20120227
  3. USTEKINUMAB [Suspect]
     Indication: PSORIATIC ARTHROPATHY
     Route: 058
     Dates: start: 20120521
  4. USTEKINUMAB [Suspect]
     Indication: PSORIASIS
     Route: 058
     Dates: start: 20120130
  5. USTEKINUMAB [Suspect]
     Indication: PSORIASIS
     Route: 058
     Dates: start: 20120227
  6. USTEKINUMAB [Suspect]
     Indication: PSORIASIS
     Route: 058
     Dates: start: 20120521
  7. BLOPRESS [Concomitant]
  8. LIPITOR [Concomitant]
     Route: 048
  9. OMEPROL [Concomitant]
     Route: 048
  10. GASMOTIN [Concomitant]
     Route: 048
  11. ANTEBATE [Concomitant]
     Indication: PSORIATIC ARTHROPATHY
     Route: 061
  12. ANTEBATE [Concomitant]
     Indication: PSORIASIS
     Route: 061
  13. OXAROL [Concomitant]
     Indication: PSORIATIC ARTHROPATHY
     Route: 061
  14. OXAROL [Concomitant]
     Indication: PSORIASIS
     Route: 061
  15. DIHYDERGOT [Concomitant]
     Route: 048
     Dates: start: 20120328
  16. XYZAL [Concomitant]
     Indication: PSORIATIC ARTHROPATHY
     Route: 048
     Dates: start: 20120328
  17. XYZAL [Concomitant]
     Indication: PSORIASIS
     Route: 048
     Dates: start: 20120328
  18. ECLAR [Concomitant]
     Indication: PSORIATIC ARTHROPATHY
     Route: 061
     Dates: start: 20120328
  19. ECLAR [Concomitant]
     Indication: PSORIASIS
     Route: 061
     Dates: start: 20120328
  20. PREDNISONE [Concomitant]
     Indication: PSORIATIC ARTHROPATHY
     Route: 048
     Dates: start: 20120416
  21. PREDNISONE [Concomitant]
     Indication: PSORIASIS
     Route: 048
     Dates: start: 20120416
  22. LOXOPROFEN [Concomitant]
     Indication: PSORIATIC ARTHROPATHY
     Route: 048
     Dates: start: 20120416
  23. LOXOPROFEN [Concomitant]
     Indication: PSORIASIS
     Route: 048
     Dates: start: 20120416
  24. POSTERISAN [Concomitant]
     Route: 061
     Dates: start: 20120416

REACTIONS (3)
  - Blood corticotrophin decreased [Recovered/Resolved]
  - Hypopituitarism [Unknown]
  - Blood cortisol decreased [Recovered/Resolved]
